FAERS Safety Report 20633165 (Version 1)
Quarter: 2022Q1

REPORT INFORMATION
  Report Type: Spontaneous
  Country: ES (occurrence: ES)
  Receive Date: 20220324
  Receipt Date: 20220324
  Transmission Date: 20220424
  Serious: Yes (Other)
  Sender: FDA-Public Use
  Company Number: ES-EXE-2018-12-00696

PATIENT
  Sex: Female

DRUGS (1)
  1. ETHINYL ESTRADIOL\ETONOGESTREL [Suspect]
     Active Substance: ETHINYL ESTRADIOL\ETONOGESTREL
     Indication: Contraception
     Dosage: ETONOGESTREL 0,120 MG/ ETHINYLESTRADIOL 0.015 MG EVERY 24H
     Route: 067

REACTIONS (2)
  - Unintended pregnancy [Unknown]
  - Drug ineffective [Unknown]
